FAERS Safety Report 9827220 (Version 1)
Quarter: 2014Q1

REPORT INFORMATION
  Report Type: Spontaneous
  Country: FR (occurrence: FR)
  Receive Date: 20140117
  Receipt Date: 20140117
  Transmission Date: 20141002
  Serious: Yes (Other)
  Sender: FDA-Public Use
  Company Number: FR-EISAI INC-E7389-04629-SPO-FR

PATIENT
  Sex: Female

DRUGS (1)
  1. HALAVEN [Suspect]
     Indication: PRODUCT USED FOR UNKNOWN INDICATION
     Dosage: UNKNOWN
     Route: 041
     Dates: start: 201309

REACTIONS (1)
  - Cardiac failure [Recovered/Resolved]
